FAERS Safety Report 18258428 (Version 1)
Quarter: 2020Q3

REPORT INFORMATION
  Report Type: Other
  Country: US (occurrence: US)
  Receive Date: 20200911
  Receipt Date: 20200911
  Transmission Date: 20201103
  Serious: No
  Sender: FDA-Public Use
  Company Number: US-LEADIANT BIOSCIENCES INC-2020STPI000038

PATIENT

DRUGS (1)
  1. MATULANE [Suspect]
     Active Substance: PROCARBAZINE HYDROCHLORIDE
     Indication: BRAIN NEOPLASM MALIGNANT
     Dosage: 50 MILLIGRAM,  HS
     Route: 048
     Dates: start: 20191130

REACTIONS (3)
  - Fatigue [Unknown]
  - Functional gastrointestinal disorder [Unknown]
  - Somnolence [Unknown]
